FAERS Safety Report 8113577-X (Version None)
Quarter: 2012Q1

REPORT INFORMATION
  Report Type: 
  Country: None (occurrence: None)
  Receive Date: 20120203
  Receipt Date: 20120126
  Transmission Date: 20120608
  Serious: Yes (Other)
  Sender: FDA-Public Use
  Company Number: FR-PFIZER INC-2011223215

PATIENT
  Age: 38 Year
  Sex: Female

DRUGS (4)
  1. TACROLIMUS [Suspect]
     Indication: IMMUNOSUPPRESSION
     Dosage: 6-12 NG/ML
  2. SIROLIMUS [Suspect]
     Dosage: UNK
     Dates: start: 20060101
  3. MYCOPHENOLATE MEFETIL [Suspect]
     Indication: IMMUNOSUPPRESSION
     Dosage: 1500 MG, /DAY
  4. PREDNISONE [Suspect]
     Indication: IMMUNOSUPPRESSION
     Dosage: 5 MG, /DAY

REACTIONS (4)
  - RENAL IMPAIRMENT [None]
  - HYPERTENSION [None]
  - LIPIDS INCREASED [None]
  - CHOLANGITIS [None]
